FAERS Safety Report 21172534 (Version 1)
Quarter: 2022Q3

REPORT INFORMATION
  Report Type: Spontaneous
  Country: SG (occurrence: SG)
  Receive Date: 20220804
  Receipt Date: 20220804
  Transmission Date: 20221026
  Serious: Yes (Hospitalization)
  Sender: FDA-Public Use
  Company Number: SG-MYLANLABS-2022M1083818

PATIENT
  Age: 68 Year
  Sex: Male

DRUGS (13)
  1. TRAMADOL [Suspect]
     Active Substance: TRAMADOL
     Indication: Pain
     Dosage: 25 MILLIGRAM, (CUMULATIVE DOSE) ON DAY 1 OF HOSPITALISATION
     Route: 048
  2. TRAMADOL [Suspect]
     Active Substance: TRAMADOL
     Indication: Analgesic therapy
     Dosage: 50 MILLIGRAM, (CUMULATIVE DOSE) ON DAY 2 OF HOSPITALISATION
     Route: 048
  3. ACETAMINOPHEN [Suspect]
     Active Substance: ACETAMINOPHEN
     Indication: Pain
     Dosage: 2 GRAM, (CUMULATIVE DOSE) ON DAY 1 OF HOSPITALISATION
     Route: 048
  4. ACETAMINOPHEN [Suspect]
     Active Substance: ACETAMINOPHEN
     Indication: Analgesic therapy
     Dosage: 3 GRAM, (CUMULATIVE DOSE) ON DAY 2, 3 AND 4 OF HOSPITALISATION
     Route: 048
  5. ACETAMINOPHEN [Suspect]
     Active Substance: ACETAMINOPHEN
     Dosage: 4 GRAM, (CUMULATIVE DOSE) ON DAY 5 OF HOSPITALISATION
     Route: 048
  6. DICLOFENAC [Suspect]
     Active Substance: DICLOFENAC
     Indication: Pain
     Dosage: 50 MILLIGRAM, (CUMULATIVE DOSE) ON DAY 1 OF HOSPITALISATION
     Route: 048
  7. DICLOFENAC [Suspect]
     Active Substance: DICLOFENAC
     Indication: Analgesic therapy
     Dosage: 75 MILLIGRAM, (CUMULATIVE DOSE) ON DAY 2 OF HOSPITALISATION
     Route: 048
  8. DICLOFENAC [Suspect]
     Active Substance: DICLOFENAC
     Dosage: 25 MILLIGRAM, (CUMULATIVE DOSE) ON DAY 3 OF HOSPITALISATION
     Route: 048
  9. MORPHINE [Suspect]
     Active Substance: MORPHINE
     Indication: Pain
     Dosage: 3 GRAM, (CUMULATIVE DOSE) ON DAY 3 OF HOSPITALISATION
     Route: 048
  10. MORPHINE [Suspect]
     Active Substance: MORPHINE
     Indication: Analgesic therapy
     Dosage: 6 GRAM, (CUMULATIVE DOSE) ON DAY 4 AND 5 OF HOSPITALISATION
     Route: 048
  11. KETOPROFEN [Suspect]
     Active Substance: KETOPROFEN
     Indication: Pain
     Dosage: 30 MILLIGRAM, (CUMULATIVE DOSE) ON DAY 3 AND 5 OF HOSPITALISATION
     Route: 065
  12. KETOPROFEN [Suspect]
     Active Substance: KETOPROFEN
     Indication: Analgesic therapy
     Dosage: 60 MILLIGRAM, (CUMULATIVE DOSE) ON DAY 4 OF HOSPITALISATION
     Route: 065
  13. ASPIRIN [Concomitant]
     Active Substance: ASPIRIN
     Indication: Atrial fibrillation
     Dosage: UNK
     Route: 065

REACTIONS (1)
  - Drug ineffective [Unknown]
